FAERS Safety Report 8107783-8 (Version None)
Quarter: 2012Q1

REPORT INFORMATION
  Report Type: 
  Country: None (occurrence: None)
  Receive Date: 20120202
  Receipt Date: 20120124
  Transmission Date: 20120608
  Serious: Yes (Other)
  Sender: FDA-Public Use
  Company Number: GB-BAXTER-2012BH002543

PATIENT
  Age: 78 Year
  Sex: Male

DRUGS (2)
  1. CORTICOSTEROIDS [Concomitant]
     Indication: CEREBRAL SARCOIDOSIS
     Route: 065
  2. GAMMAGARD LIQUID [Suspect]
     Indication: CEREBRAL SARCOIDOSIS
     Route: 042

REACTIONS (1)
  - BORRELIA TEST POSITIVE [None]
